FAERS Safety Report 7833854-7 (Version None)
Quarter: 2011Q4

REPORT INFORMATION
  Report Type: 
  Country: None (occurrence: None)
  Receive Date: 20111024
  Receipt Date: 20111011
  Transmission Date: 20120403
  Serious: Yes (Other)
  Sender: FDA-Public Use
  Company Number: JP-GLAXOSMITHKLINE-B0755579A

PATIENT
  Age: 32 Year
  Sex: Female

DRUGS (7)
  1. LAMICTAL [Suspect]
     Indication: PRODUCT USED FOR UNKNOWN INDICATION
     Dosage: 25MG PER DAY
     Route: 048
  2. LAMICTAL [Suspect]
     Dosage: 50MG PER DAY
     Route: 048
     Dates: end: 20111011
  3. LENDORMIN [Concomitant]
     Route: 048
  4. PAXIL [Concomitant]
     Route: 048
  5. SEROQUEL [Concomitant]
     Route: 048
  6. ZOLOFT [Concomitant]
     Route: 048
  7. LAMICTAL [Suspect]
     Dosage: 75MG PER DAY
     Route: 048

REACTIONS (4)
  - BLISTER [None]
  - WHITE BLOOD CELL COUNT DECREASED [None]
  - URTICARIA [None]
  - PYREXIA [None]
